FAERS Safety Report 10521463 (Version 2)
Quarter: 2014Q4

REPORT INFORMATION
  Report Type: Spontaneous
  Country: JP (occurrence: JP)
  Receive Date: 20141016
  Receipt Date: 20141016
  Transmission Date: 20150528
  Serious: Yes (Hospitalization)
  Sender: FDA-Public Use
  Company Number: JP-GE HEALTHCARE MEDICAL DIAGNOSTICS-VISP-PR-1409S-0430

PATIENT
  Age: 80 Year
  Sex: Female
  Weight: 51 kg

DRUGS (17)
  1. VISIPAQUE [Suspect]
     Active Substance: IODIXANOL
     Indication: PRODUCT USED FOR UNKNOWN INDICATION
     Route: 013
     Dates: start: 20140909, end: 20140909
  2. ANTAGOSTIN [Concomitant]
     Dates: start: 20140903
  3. PANTOSIN [Concomitant]
     Active Substance: PANTETHINE
  4. NOVORAPID [Concomitant]
     Active Substance: INSULIN ASPART
  5. NOVORAPID [Concomitant]
     Active Substance: INSULIN ASPART
  6. MAGNESIUM OXIDE. [Concomitant]
     Active Substance: MAGNESIUM OXIDE
  7. IMIDAPRIL HYDROCHLORIDE OHARA [Concomitant]
     Dates: start: 20140903
  8. PLAVIX [Suspect]
     Active Substance: CLOPIDOGREL BISULFATE
     Indication: PERIPHERAL ARTERIAL OCCLUSIVE DISEASE
     Route: 048
     Dates: start: 2014
  9. GLORIAMIN [Concomitant]
  10. BAYASPIRIN [Suspect]
     Active Substance: ASPIRIN
     Indication: PERIPHERAL ARTERIAL OCCLUSIVE DISEASE
     Route: 048
  11. VISIPAQUE [Suspect]
     Active Substance: IODIXANOL
     Indication: DIAGNOSTIC PROCEDURE
  12. AH113111 INJECTION [Suspect]
     Active Substance: IOFORMINOL
     Indication: DIAGNOSTIC PROCEDURE
  13. LIMARMONE [Concomitant]
     Dates: start: 20140903
  14. TRYTHMEN [Concomitant]
     Dates: start: 20140903
  15. AH113111 INJECTION [Suspect]
     Active Substance: IOFORMINOL
     Indication: PRODUCT USED FOR UNKNOWN INDICATION
     Route: 013
     Dates: start: 20140909, end: 20140909
  16. CILOSTAZOL. [Suspect]
     Active Substance: CILOSTAZOL
     Indication: PERIPHERAL ARTERIAL OCCLUSIVE DISEASE
     Route: 048
     Dates: start: 20140903
  17. AMLODIPINE [Concomitant]
     Active Substance: AMLODIPINE BESYLATE

REACTIONS (1)
  - Lower gastrointestinal haemorrhage [Recovered/Resolved]

NARRATIVE: CASE EVENT DATE: 20140917
